FAERS Safety Report 9331199 (Version 2)
Quarter: 2013Q2

REPORT INFORMATION
  Report Type: Spontaneous
  Country: US (occurrence: US)
  Receive Date: 20130605
  Receipt Date: 20130621
  Transmission Date: 20140414
  Serious: No
  Sender: FDA-Public Use
  Company Number: US-009507513-1305USA016403

PATIENT
  Age: 45 Year
  Sex: Male

DRUGS (4)
  1. CLARITIN [Suspect]
     Indication: SEASONAL ALLERGY
     Dosage: 10 MG, BID
     Route: 048
     Dates: start: 20130101, end: 20130601
  2. CLARITIN [Suspect]
     Indication: NASAL CONGESTION
  3. CLARITIN [Suspect]
     Indication: SINUS HEADACHE
  4. LIPITOR [Concomitant]
     Indication: BLOOD CHOLESTEROL
     Dosage: UNK, UNKNOWN

REACTIONS (2)
  - Overdose [Unknown]
  - Drug ineffective [Unknown]
